FAERS Safety Report 6398472-9 (Version None)
Quarter: 2009Q4

REPORT INFORMATION
  Report Type: 
  Country: None (occurrence: None)
  Receive Date: 20091013
  Receipt Date: 20091006
  Transmission Date: 20100525
  Serious: Yes (Life-Threatening, Other)
  Sender: FDA-Public Use
  Company Number: A0811240A

PATIENT
  Sex: Male

DRUGS (2)
  1. RELENZA [Suspect]
     Dosage: 10MG UNKNOWN
     Route: 055
     Dates: start: 20091006
  2. NO CONCURRENT MEDICATION [Concomitant]

REACTIONS (3)
  - ASTHMA [None]
  - DYSPNOEA [None]
  - TACHYCARDIA [None]
